FAERS Safety Report 11937947 (Version 1)
Quarter: 2016Q1

REPORT INFORMATION
  Report Type: Spontaneous
  Country: US (occurrence: None)
  Receive Date: 20160121
  Receipt Date: 20160121
  Transmission Date: 20160526
  Serious: Yes (Death)
  Sender: FDA-Public Use
  Company Number: None

PATIENT
  Age: 34 Year
  Sex: Male

DRUGS (2)
  1. REVLIMID [Concomitant]
     Active Substance: LENALIDOMIDE
  2. SIROLIMUS. [Suspect]
     Active Substance: SIROLIMUS
     Indication: PLASMA CELL MYELOMA
     Dosage: 2 MG TAB
     Route: 048
     Dates: start: 201508, end: 201601

REACTIONS (1)
  - Death [None]

NARRATIVE: CASE EVENT DATE: 201601
